FAERS Safety Report 6898888-8 (Version None)
Quarter: 2010Q3

REPORT INFORMATION
  Report Type: 
  Country: None (occurrence: None)
  Receive Date: 20100802
  Receipt Date: 20071206
  Transmission Date: 20110219
  Serious: Yes (Other)
  Sender: FDA-Public Use
  Company Number: US-PFIZER INC-2007103011

PATIENT
  Sex: Female

DRUGS (2)
  1. LYRICA [Suspect]
     Indication: SCOLIOSIS
     Route: 048
     Dates: start: 20071001
  2. DRUG, UNSPECIFIED [Concomitant]

REACTIONS (5)
  - COUGH [None]
  - DYSPHAGIA [None]
  - MYALGIA [None]
  - PHARYNGEAL OEDEMA [None]
  - RETCHING [None]
